FAERS Safety Report 23663243 (Version 2)
Quarter: 2024Q2

REPORT INFORMATION
  Report Type: Spontaneous
  Country: US (occurrence: US)
  Receive Date: 20240322
  Receipt Date: 20240423
  Transmission Date: 20240715
  Serious: Yes (Other)
  Sender: FDA-Public Use
  Company Number: US-BEH-2024169946

PATIENT
  Age: 13 Year
  Sex: Female

DRUGS (2)
  1. PRIVIGEN [Suspect]
     Active Substance: HUMAN IMMUNOGLOBULIN G
     Indication: Hypogammaglobulinaemia
     Dosage: 30 GRAM, EVERY 28 DAYS
     Route: 042
     Dates: start: 202308
  2. EVEROLIMUS [Concomitant]
     Active Substance: EVEROLIMUS
     Route: 048

REACTIONS (1)
  - Coma [Unknown]
